FAERS Safety Report 15835726 (Version 6)
Quarter: 2020Q2

REPORT INFORMATION
  Report Type: Spontaneous
  Country: PT (occurrence: PT)
  Receive Date: 20190117
  Receipt Date: 20200405
  Transmission Date: 20200713
  Serious: Yes (Hospitalization, Other)
  Sender: FDA-Public Use
  Company Number: PT-CELLTRION INC.-2019PT017647

PATIENT

DRUGS (10)
  1. INFLIXIMAB (UNKNOWN) [Suspect]
     Active Substance: INFLIXIMAB
     Dosage: 1 CYCLICAL, AT 9WEEKS
     Route: 042
  2. CERTOLIZUMAB PEGOL [Suspect]
     Active Substance: CERTOLIZUMAB PEGOL
     Indication: BEHCET^S SYNDROME
     Dosage: 1 CYCLICAL, AT 24 WEEKS
  3. INFLIXIMAB (UNKNOWN) [Suspect]
     Active Substance: INFLIXIMAB
     Dosage: 1 DOSAGE FORM
     Route: 042
  4. PREDNISOLONE. [Suspect]
     Active Substance: PREDNISOLONE
     Dosage: 10 MILLIGRAM
     Route: 065
  5. ASPIRIN. [Suspect]
     Active Substance: ASPIRIN
     Dosage: UNK
     Route: 065
  6. PREDNISOLONE. [Suspect]
     Active Substance: PREDNISOLONE
     Indication: BEHCET^S SYNDROME
     Dosage: 10 MG, UNK
     Route: 065
  7. ENOXAPARIN SODIUM. [Suspect]
     Active Substance: ENOXAPARIN SODIUM
     Indication: BEHCET^S SYNDROME
     Dosage: UNKNOWN DOSE
     Route: 065
  8. CERTOLIZUMAB PEGOL [Suspect]
     Active Substance: CERTOLIZUMAB PEGOL
     Dosage: 1 DOSAGE FORM
     Route: 065
  9. INFLIXIMAB (UNKNOWN) [Suspect]
     Active Substance: INFLIXIMAB
     Indication: BEHCET^S SYNDROME
     Dosage: 1 CYCLICAL AT 17WEEKS
     Route: 042
  10. ASPIRIN. [Suspect]
     Active Substance: ASPIRIN
     Indication: BEHCET^S SYNDROME
     Dosage: EVERY 9 WEEK
     Route: 065

REACTIONS (10)
  - Maternal exposure during pregnancy [Recovered/Resolved]
  - Vulval disorder [Recovering/Resolving]
  - Skin disorder [Recovering/Resolving]
  - Premature delivery [Unknown]
  - Product use in unapproved indication [Unknown]
  - Premature labour [Recovered/Resolved]
  - Unintentional use for unapproved indication [Unknown]
  - Behcet^s syndrome [Unknown]
  - Twin pregnancy [Unknown]
  - Drug ineffective for unapproved indication [Unknown]
